FAERS Safety Report 9758708 (Version 1)
Quarter: 2013Q4

REPORT INFORMATION
  Report Type: Spontaneous
  Country: US (occurrence: None)
  Receive Date: 20131213
  Receipt Date: 20131213
  Transmission Date: 20140711
  Serious: Yes (Other)
  Sender: FDA-Public Use
  Company Number: None

PATIENT
  Sex: Male

DRUGS (2)
  1. TIMOLOL [Suspect]
     Indication: GLAUCOMA
  2. LATANOPROST [Suspect]
     Indication: GLAUCOMA

REACTIONS (5)
  - Vision blurred [None]
  - Headache [None]
  - Vertigo [None]
  - Dizziness [None]
  - Photophobia [None]
